FAERS Safety Report 7075292-3 (Version None)
Quarter: 2010Q4

REPORT INFORMATION
  Report Type: 
  Country: None (occurrence: None)
  Receive Date: 20101030
  Receipt Date: 20101020
  Transmission Date: 20110411
  Serious: No
  Sender: FDA-Public Use
  Company Number: US-WYE-H16990510

PATIENT
  Sex: Female
  Weight: 68.1 kg

DRUGS (6)
  1. PRISTIQ [Suspect]
     Indication: DEPRESSION
     Route: 048
     Dates: start: 20100803
  2. ZOLOFT [Suspect]
     Indication: DEPRESSION
     Route: 048
     Dates: start: 20060901
  3. TRILAFON [Concomitant]
  4. VICODIN [Concomitant]
  5. AMBIEN [Concomitant]
  6. ADDERALL 10 [Concomitant]

REACTIONS (4)
  - DIZZINESS [None]
  - FEELING ABNORMAL [None]
  - HEADACHE [None]
  - SEDATION [None]
